FAERS Safety Report 10630248 (Version 2)
Quarter: 2015Q1

REPORT INFORMATION
  Report Type: Spontaneous
  Country: US (occurrence: US)
  Receive Date: 20141205
  Receipt Date: 20150108
  Transmission Date: 20150720
  Serious: No
  Sender: FDA-Public Use
  Company Number: US-BRISTOL-MYERS SQUIBB COMPANY-21588801

PATIENT
  Sex: Female

DRUGS (2)
  1. ABILIFY [Suspect]
     Active Substance: ARIPIPRAZOLE
     Indication: DEPRESSION
     Dosage: 2 MG, QD
     Route: 048
     Dates: start: 20141028
  2. EFFEXOR [Suspect]
     Active Substance: VENLAFAXINE HYDROCHLORIDE
     Indication: DEPRESSION
     Dosage: UNK, BID
     Route: 065

REACTIONS (7)
  - Sleep disorder [Recovered/Resolved]
  - Restless legs syndrome [Recovered/Resolved]
  - Mental impairment [Unknown]
  - Dizziness [Unknown]
  - Pain [Unknown]
  - Extrapyramidal disorder [Recovered/Resolved]
  - Head discomfort [Unknown]
